FAERS Safety Report 21442593 (Version 4)
Quarter: 2023Q2

REPORT INFORMATION
  Report Type: Spontaneous
  Country: CA (occurrence: CA)
  Receive Date: 20221012
  Receipt Date: 20230616
  Transmission Date: 20230722
  Serious: Yes (Other)
  Sender: FDA-Public Use
  Company Number: CA-CELLTRION INC.-2021CA018168

PATIENT

DRUGS (8)
  1. INFLECTRA [Suspect]
     Active Substance: INFLIXIMAB-DYYB
     Indication: Crohn^s disease
     Dosage: 400 MG INDUCTION AT 0 ,2, 6 WEEKS, THEN EVERY 8 WEEKS
     Route: 042
     Dates: start: 20211201, end: 20220309
  2. INFLECTRA [Suspect]
     Active Substance: INFLIXIMAB-DYYB
     Dosage: 400 MG EVERY 4 WEEKS
     Route: 042
     Dates: start: 20220413
  3. INFLECTRA [Suspect]
     Active Substance: INFLIXIMAB-DYYB
     Dosage: 400 MG EVERY 4 WEEKS
     Route: 042
     Dates: start: 20220907
  4. INFLECTRA [Suspect]
     Active Substance: INFLIXIMAB-DYYB
     Dosage: 700 MG EVERY 4 WEEKS (SUPPOSED TO RECEIVE 5 MG/KG)
     Route: 042
     Dates: start: 20220928
  5. INFLECTRA [Suspect]
     Active Substance: INFLIXIMAB-DYYB
     Dosage: 400 MG EVERY 4 WEEKS
     Route: 042
     Dates: start: 20221005
  6. INFLECTRA [Suspect]
     Active Substance: INFLIXIMAB-DYYB
     Dosage: 400 MG EVERY 4 WEEKS
     Route: 042
     Dates: start: 20230607
  7. HYDROCORTISONE [Concomitant]
     Active Substance: HYDROCORTISONE
     Indication: Premedication
     Dosage: UNK, QD
     Dates: start: 20230607, end: 20230607
  8. PREDNISONE [Concomitant]
     Active Substance: PREDNISONE
     Dosage: UNK

REACTIONS (5)
  - Weight increased [Unknown]
  - Blood pressure systolic increased [Unknown]
  - Off label use [Unknown]
  - Off label use [Unknown]
  - Incorrect dose administered [Unknown]

NARRATIVE: CASE EVENT DATE: 20220928
